FAERS Safety Report 7301436-1 (Version None)
Quarter: 2011Q1

REPORT INFORMATION
  Report Type: 
  Country: None (occurrence: None)
  Receive Date: 20110113
  Receipt Date: 20101006
  Transmission Date: 20110831
  Serious: No
  Sender: FDA-Public Use
  Company Number: US-001327

PATIENT
  Sex: Male
  Weight: 42.9 kg

DRUGS (2)
  1. KUVAN [Suspect]
     Indication: PHENYLKETONURIA
     Dosage: 400 MG BID ORAL, 900 MG QD ORAL
     Route: 048
     Dates: start: 20080201, end: 20100926
  2. KUVAN [Suspect]
     Indication: PHENYLKETONURIA
     Dosage: 400 MG BID ORAL, 900 MG QD ORAL
     Route: 048
     Dates: start: 20100927

REACTIONS (5)
  - FRUSTRATION [None]
  - PHOBIA [None]
  - TIC [None]
  - OBSESSIVE-COMPULSIVE DISORDER [None]
  - ANXIETY [None]
